FAERS Safety Report 8419347-7 (Version None)
Quarter: 2012Q2

REPORT INFORMATION
  Report Type: 
  Country: None (occurrence: None)
  Receive Date: 20120607
  Receipt Date: 20120514
  Transmission Date: 20120825
  Serious: No
  Sender: FDA-Public Use
  Company Number: US-ASTRAZENECA-2012SE30896

PATIENT
  Age: 62 Year
  Sex: Female
  Weight: 53.1 kg

DRUGS (5)
  1. GINGER ROOT [Concomitant]
  2. PROBIOTICS [Concomitant]
  3. CHAMOMILE [Concomitant]
  4. DIGESTIVE GOLD [Concomitant]
  5. OMEPRAZOLE [Suspect]
     Indication: ABDOMINAL DISCOMFORT
     Dosage: DAILY
     Route: 048
     Dates: start: 20120501

REACTIONS (4)
  - SLEEP DISORDER DUE TO A GENERAL MEDICAL CONDITION [None]
  - PAIN [None]
  - HEADACHE [None]
  - ABDOMINAL PAIN UPPER [None]
